FAERS Safety Report 6050727-3 (Version None)
Quarter: 2009Q1

REPORT INFORMATION
  Report Type: 
  Country: None (occurrence: None)
  Receive Date: 20090121
  Receipt Date: 20090121
  Transmission Date: 20090719
  Serious: No
  Sender: FDA-Public Use
  Company Number: None

PATIENT
  Sex: Male
  Weight: 68.64 kg

DRUGS (3)
  1. VARENICLINE [Suspect]
     Dosage: 1MG TABLET 1 MG QD ORAL
     Route: 048
     Dates: start: 20080227, end: 20090121
  2. ADDERALL XR (AMPHETAMINE/DEXTROAMPHETAMINE SR) [Concomitant]
  3. ROBITUSSIN AC (GUAIFENESIN AC) [Concomitant]

REACTIONS (1)
  - DEPRESSION [None]
